FAERS Safety Report 17384110 (Version 1)
Quarter: 2020Q1

REPORT INFORMATION
  Report Type: Spontaneous
  Country: US (occurrence: US)
  Receive Date: 20200206
  Receipt Date: 20200206
  Transmission Date: 20200409
  Serious: No
  Sender: FDA-Public Use
  Company Number: US-ABBVIE-19K-163-3010807-00

PATIENT

DRUGS (1)
  1. HUMIRA [Suspect]
     Active Substance: ADALIMUMAB
     Indication: HIDRADENITIS
     Route: 058

REACTIONS (7)
  - Burning sensation [Unknown]
  - Fatigue [Unknown]
  - Pain in extremity [Unknown]
  - Injection site erythema [Unknown]
  - Nausea [Unknown]
  - Injection site pain [Unknown]
  - Pain [Unknown]
